FAERS Safety Report 7192466-1 (Version None)
Quarter: 2010Q4

REPORT INFORMATION
  Report Type: 
  Country: None (occurrence: None)
  Receive Date: 20101223
  Receipt Date: 20100825
  Transmission Date: 20110411
  Serious: No
  Sender: FDA-Public Use
  Company Number: US-AMGEN-TCS433943

PATIENT

DRUGS (1)
  1. ENBREL [Suspect]
     Indication: PSORIASIS
     Dosage: 50 MG, QWK
     Route: 058
     Dates: start: 20050731

REACTIONS (15)
  - ABNORMAL DREAMS [None]
  - ARTHRALGIA [None]
  - BLOOD TESTOSTERONE DECREASED [None]
  - DISORIENTATION [None]
  - DIZZINESS [None]
  - DIZZINESS POSTURAL [None]
  - EXCORIATION [None]
  - FALL [None]
  - FATIGUE [None]
  - IMPAIRED HEALING [None]
  - INSOMNIA [None]
  - LACERATION [None]
  - NAIL HYPERTROPHY [None]
  - ONYCHOCLASIS [None]
  - PSORIASIS [None]
